FAERS Safety Report 6793460-2 (Version None)
Quarter: 2010Q2

REPORT INFORMATION
  Report Type: 
  Country: None (occurrence: None)
  Receive Date: 20100624
  Receipt Date: 20100331
  Transmission Date: 20101027
  Serious: Yes (Death)
  Sender: FDA-Public Use
  Company Number: US-MYLANLABS-2010S1004960

PATIENT
  Age: 53 Year
  Sex: Male

DRUGS (7)
  1. CLOZAPINE [Suspect]
  2. SPIRIVA [Concomitant]
  3. LEXAPRO [Concomitant]
  4. PRILOSEC [Concomitant]
  5. KLONOPIN [Concomitant]
  6. THEOPHYLLINE [Concomitant]
  7. COGENTIN [Concomitant]

REACTIONS (1)
  - DEATH [None]
